FAERS Safety Report 25353287 (Version 1)
Quarter: 2025Q2

REPORT INFORMATION
  Report Type: Report from Study
  Country: US (occurrence: US)
  Receive Date: 20250523
  Receipt Date: 20250523
  Transmission Date: 20250717
  Serious: Yes (Other)
  Sender: ACADIA PHARMACEUTICALS
  Company Number: US-ACADIA PHARMACEUTICALS INC.-ACA-2025-PIM-005986

PATIENT
  Sex: Male

DRUGS (15)
  1. NUPLAZID [Suspect]
     Active Substance: PIMAVANSERIN TARTRATE
     Indication: Parkinson^s disease
     Dosage: 34 MILLIGRAM, QD
     Route: 048
     Dates: start: 20240123
  2. CARBIDOPA\LEVODOPA [Concomitant]
     Active Substance: CARBIDOPA\LEVODOPA
  3. MYRBETRIQ [Concomitant]
     Active Substance: MIRABEGRON
  4. PENTOXIFYLLINE [Concomitant]
     Active Substance: PENTOXIFYLLINE
  5. PREGABALIN [Concomitant]
     Active Substance: PREGABALIN
  6. TAMSULOSIN [Concomitant]
     Active Substance: TAMSULOSIN
  7. FAMOTIDINE [Concomitant]
     Active Substance: FAMOTIDINE
  8. ATORVASTATIN [Concomitant]
     Active Substance: ATORVASTATIN
  9. TORSEMIDE [Concomitant]
     Active Substance: TORSEMIDE
  10. FINASTERIDE [Concomitant]
     Active Substance: FINASTERIDE
  11. DULOXETINE [Concomitant]
     Active Substance: DULOXETINE
  12. DONEPEZIL [Concomitant]
     Active Substance: DONEPEZIL
  13. ADULT MULTIVITAMIN [Concomitant]
  14. VITAMIN B1 [Concomitant]
     Active Substance: THIAMINE HYDROCHLORIDE
  15. VITAMIN B12 [Concomitant]
     Active Substance: CYANOCOBALAMIN

REACTIONS (1)
  - Hallucination [Not Recovered/Not Resolved]
